FAERS Safety Report 5242660-1 (Version None)
Quarter: 2007Q1

REPORT INFORMATION
  Report Type: 
  Country: None (occurrence: None)
  Receive Date: 20070214
  Receipt Date: 20070202
  Transmission Date: 20070707
  Serious: Yes (Disabling)
  Sender: FDA-Public Use
  Company Number: 2007RL000038

PATIENT
  Age: 73 Year
  Sex: Male

DRUGS (5)
  1. NIZATIDINE [Suspect]
     Indication: GASTRITIS
     Dosage: 150 MG;BID;PO
     Route: 048
     Dates: start: 20061001, end: 20061214
  2. ETIZOLAM [Concomitant]
  3. BETAMETHASONE [Concomitant]
  4. ETODOLAC [Concomitant]
  5. MAGNESIUM OXIDE [Concomitant]

REACTIONS (2)
  - NO THERAPEUTIC RESPONSE [None]
  - RENAL IMPAIRMENT [None]
